FAERS Safety Report 17300519 (Version 1)
Quarter: 2020Q1

REPORT INFORMATION
  Report Type: Spontaneous
  Country: US (occurrence: US)
  Receive Date: 20200122
  Receipt Date: 20200122
  Transmission Date: 20200409
  Serious: No
  Sender: FDA-Public Use
  Company Number: US-ALLERGAN-1944517US

PATIENT
  Age: 76 Year
  Sex: Male

DRUGS (7)
  1. RESTASIS [Suspect]
     Active Substance: CYCLOSPORINE
     Dosage: 1-2 DROPS PER EYE, BID
     Route: 047
  2. FINASTERIDE. [Concomitant]
     Active Substance: FINASTERIDE
     Indication: BENIGN PROSTATIC HYPERPLASIA
  3. DOXAZOSIN [Concomitant]
     Active Substance: DOXAZOSIN MESYLATE
  4. RESTASIS [Suspect]
     Active Substance: CYCLOSPORINE
     Indication: DRY EYE
     Dosage: 2 GTT, BID
     Route: 047
  5. OVER THE COUNTER ARTIFICIAL TEARS [Concomitant]
  6. MYRBETRIQ [Concomitant]
     Active Substance: MIRABEGRON
  7. OVER THE COUNTER OMEGA-3 [Concomitant]

REACTIONS (7)
  - Eye irritation [Not Recovered/Not Resolved]
  - Nasopharyngitis [Not Recovered/Not Resolved]
  - Nasal congestion [Recovered/Resolved]
  - Incorrect dose administered [Unknown]
  - Rhinorrhoea [Recovered/Resolved]
  - Lacrimation increased [Recovering/Resolving]
  - Multiple use of single-use product [Unknown]
